FAERS Safety Report 9397451 (Version 3)
Quarter: 2013Q3

REPORT INFORMATION
  Report Type: Spontaneous
  Country: IT (occurrence: IT)
  Receive Date: 20130712
  Receipt Date: 20130916
  Transmission Date: 20140515
  Serious: Yes (Hospitalization)
  Sender: FDA-Public Use
  Company Number: IT-PFIZER INC-2013204740

PATIENT
  Age: 81 Year
  Sex: Female

DRUGS (7)
  1. DEDRALEN [Suspect]
     Indication: HYPERTENSION
     Dosage: 1 DF, TOTAL DOSE
     Route: 048
     Dates: start: 20130705, end: 20130705
  2. MODURETIC [Concomitant]
     Indication: HYPERTENSION
     Dosage: UNK
  3. TRIATEC [Concomitant]
     Indication: HYPERTENSION
     Dosage: UNK
  4. DELTACORTENE [Concomitant]
     Dosage: UNK
  5. GLUCOBAY [Concomitant]
     Indication: DIABETES MELLITUS
     Dosage: UNK
  6. OPTINATE [Concomitant]
     Dosage: UNK
  7. PLAQUENIL [Concomitant]
     Indication: SYSTEMIC LUPUS ERYTHEMATOSUS

REACTIONS (3)
  - Head injury [Recovering/Resolving]
  - Syncope [Recovering/Resolving]
  - Blood pressure decreased [Recovering/Resolving]
